FAERS Safety Report 21685260 (Version 1)
Quarter: 2022Q4

REPORT INFORMATION
  Report Type: Report from Study
  Country: IT (occurrence: IT)
  Receive Date: 20221206
  Receipt Date: 20221206
  Transmission Date: 20230113
  Serious: Yes (Other)
  Sender: FDA-Public Use
  Company Number: IT-WOCKHARDT BIO AG-2022WBA000188

PATIENT
  Age: 30 Year
  Sex: Male

DRUGS (1)
  1. LAMOTRIGINE [Suspect]
     Active Substance: LAMOTRIGINE
     Indication: Epilepsy
     Dosage: 3 MILLIGRAM/KILOGRAM/DAY
     Route: 065

REACTIONS (1)
  - Brugada syndrome [Recovered/Resolved]
